FAERS Safety Report 8231370-4 (Version None)
Quarter: 2012Q1

REPORT INFORMATION
  Report Type: 
  Country: None (occurrence: None)
  Receive Date: 20120323
  Receipt Date: 20120315
  Transmission Date: 20120608
  Serious: Yes (Other)
  Sender: FDA-Public Use
  Company Number: US-AMGEN-USASP2012015616

PATIENT
  Age: 49 Year
  Sex: Male
  Weight: 136.5 kg

DRUGS (1)
  1. ENBREL [Suspect]
     Indication: PSORIATIC ARTHROPATHY
     Dosage: 50 MG, QWK
     Route: 058
     Dates: start: 20120227

REACTIONS (4)
  - DEPRESSION [None]
  - MIGRAINE [None]
  - NAUSEA [None]
  - INFLUENZA LIKE ILLNESS [None]
